FAERS Safety Report 24253250 (Version 1)
Quarter: 2024Q3

REPORT INFORMATION
  Report Type: Spontaneous
  Country: AU (occurrence: AU)
  Receive Date: 20240827
  Receipt Date: 20240827
  Transmission Date: 20241016
  Serious: Yes (Hospitalization)
  Sender: MYLAN
  Company Number: AU-MYLANLABS-2024M1078242

PATIENT
  Age: 64 Year
  Sex: Male

DRUGS (17)
  1. FLUCLOXACILLIN [Suspect]
     Active Substance: FLUCLOXACILLIN
     Indication: Staphylococcal bacteraemia
     Dosage: 2 GRAM, QID
     Route: 042
  2. FLUCLOXACILLIN [Suspect]
     Active Substance: FLUCLOXACILLIN
     Indication: Osteomyelitis
  3. FLUCLOXACILLIN [Suspect]
     Active Substance: FLUCLOXACILLIN
     Indication: Arthritis bacterial
  4. FLUCLOXACILLIN [Suspect]
     Active Substance: FLUCLOXACILLIN
     Indication: Bacteriuria
  5. ACETAMINOPHEN [Suspect]
     Active Substance: ACETAMINOPHEN
     Indication: Neck pain
     Dosage: 500 MILLIGRAM, AS NEEDED
     Route: 065
  6. LEVETIRACETAM [Concomitant]
     Active Substance: LEVETIRACETAM
     Indication: Epilepsy
     Dosage: UNK
     Route: 065
  7. PHENYTOIN [Concomitant]
     Active Substance: PHENYTOIN
     Indication: Epilepsy
     Dosage: UNK
     Route: 065
  8. METFORMIN [Concomitant]
     Active Substance: METFORMIN HYDROCHLORIDE
     Indication: Type 2 diabetes mellitus
     Dosage: UNK
     Route: 065
  9. DULAGLUTIDE [Concomitant]
     Active Substance: DULAGLUTIDE
     Indication: Type 2 diabetes mellitus
     Dosage: UNK
     Route: 065
  10. INSULIN GLARGINE [Concomitant]
     Active Substance: INSULIN GLARGINE
     Indication: Type 2 diabetes mellitus
     Dosage: UNK
     Route: 065
  11. GLICLAZIDE [Concomitant]
     Active Substance: GLICLAZIDE
     Indication: Type 2 diabetes mellitus
     Dosage: UNK
     Route: 065
  12. THIAMINE [Concomitant]
     Active Substance: THIAMINE
     Indication: Vitamin supplementation
     Dosage: UNK
     Route: 065
  13. PRAZOSIN [Concomitant]
     Active Substance: PRAZOSIN\PRAZOSIN HYDROCHLORIDE
     Indication: Benign prostatic hyperplasia
     Dosage: UNK
     Route: 065
  14. MIRTAZAPINE [Concomitant]
     Active Substance: MIRTAZAPINE
     Indication: Product used for unknown indication
     Dosage: UNK
     Route: 065
  15. PANTOPRAZOLE [Concomitant]
     Active Substance: PANTOPRAZOLE
     Indication: Product used for unknown indication
     Dosage: UNK
     Route: 065
  16. CHOLECALCIFEROL [Concomitant]
     Active Substance: CHOLECALCIFEROL
     Indication: Vitamin supplementation
     Dosage: UNK
     Route: 065
  17. FEXOFENADINE [Concomitant]
     Active Substance: FEXOFENADINE HYDROCHLORIDE
     Indication: Product used for unknown indication
     Dosage: UNK
     Route: 065

REACTIONS (1)
  - Metabolic acidosis [Recovered/Resolved]
